FAERS Safety Report 4957095-6 (Version None)
Quarter: 2006Q1

REPORT INFORMATION
  Report Type: 
  Country: None (occurrence: None)
  Receive Date: 20060323
  Receipt Date: 20060309
  Transmission Date: 20060701
  Serious: Yes (Hospitalization)
  Sender: FDA-Public Use
  Company Number: US200603002532

PATIENT
  Age: 66 Year
  Sex: Male

DRUGS (5)
  1. CYMBALTA [Suspect]
     Indication: MAJOR DEPRESSION
     Dosage: 30 MG
     Dates: start: 20060217, end: 20060223
  2. NEURONTIN [Concomitant]
  3. PROVIGIL [Concomitant]
  4. SEROQUEL [Concomitant]
  5. LIPITOR [Concomitant]

REACTIONS (1)
  - ANGIONEUROTIC OEDEMA [None]
